FAERS Safety Report 10748706 (Version 1)
Quarter: 2015Q1

REPORT INFORMATION
  Report Type: Spontaneous
  Country: US (occurrence: None)
  Receive Date: 20150128
  Receipt Date: 20150128
  Transmission Date: 20150721
  Serious: Yes (Other)
  Sender: FDA-Public Use
  Company Number: None

PATIENT
  Age: 58 Year
  Sex: Male
  Weight: 106.6 kg

DRUGS (1)
  1. DILTIAZEM [Suspect]
     Active Substance: DILTIAZEM
     Indication: ATRIAL FIBRILLATION
     Dosage: ONE CAPSULE EVERY DAY, ONCE DAILY, TAKEN BY MOUTH
     Route: 048
     Dates: start: 20140210, end: 20150127

REACTIONS (2)
  - Paraesthesia [None]
  - Alopecia [None]

NARRATIVE: CASE EVENT DATE: 20150127
